FAERS Safety Report 4673663-3 (Version None)
Quarter: 2005Q2

REPORT INFORMATION
  Report Type: 
  Country: None (occurrence: None)
  Receive Date: 20050523
  Receipt Date: 20050506
  Transmission Date: 20051028
  Serious: Yes (Other)
  Sender: FDA-Public Use
  Company Number: DSA_60488_2005

PATIENT
  Age: 68 Year
  Sex: Female

DRUGS (6)
  1. D.H.E. 45 [Suspect]
     Indication: MIGRAINE
     Dosage: 1 ML PRN SC
     Route: 058
     Dates: end: 20050216
  2. D.H.E. 45 [Suspect]
     Indication: MIGRAINE
     Dosage: 1 ML PRN SC
     Route: 058
     Dates: end: 20050216
  3. TOPROL-XL [Concomitant]
  4. PREVACID [Concomitant]
  5. SYNTHROID [Concomitant]
  6. MAXZIDE [Concomitant]

REACTIONS (10)
  - ASTHENIA [None]
  - BLOOD PRESSURE INCREASED [None]
  - BLOOD SODIUM DECREASED [None]
  - DIZZINESS [None]
  - DYSPNOEA [None]
  - FEELING ABNORMAL [None]
  - FEELING COLD [None]
  - HEART RATE INCREASED [None]
  - NAUSEA [None]
  - TREMOR [None]
